FAERS Safety Report 19576941 (Version 1)
Quarter: 2021Q3

REPORT INFORMATION
  Report Type: Spontaneous
  Country: US (occurrence: US)
  Receive Date: 20210719
  Receipt Date: 20210719
  Transmission Date: 20211014
  Serious: No
  Sender: FDA-Public Use
  Company Number: US-GLENMARK PHARMACEUTICALS-2021GMK053817

PATIENT

DRUGS (1)
  1. MUPIROCIN OINTMENT USP, 2% [Suspect]
     Active Substance: MUPIROCIN
     Indication: NASAL MUCOSAL DISORDER
     Dosage: UNK, 3 TIMES A WEEK
     Route: 045

REACTIONS (2)
  - Product use in unapproved indication [Unknown]
  - Product use issue [Unknown]
